FAERS Safety Report 18193944 (Version 1)
Quarter: 2020Q3

REPORT INFORMATION
  Report Type: Spontaneous
  Country: US (occurrence: US)
  Receive Date: 20200825
  Receipt Date: 20200825
  Transmission Date: 20201103
  Serious: No
  Sender: FDA-Public Use
  Company Number: US-ROCHE-2570718

PATIENT
  Sex: Female

DRUGS (7)
  1. TRAZODONE [Concomitant]
     Active Substance: TRAZODONE HYDROCHLORIDE
  2. PEGASYS [Suspect]
     Active Substance: PEGINTERFERON ALFA-2A
     Indication: BEHCET^S SYNDROME
     Dosage: 180UG/ML?0.5 ML TO BE INJECTED
     Route: 058
     Dates: start: 20190317
  3. INFLIXIMAB [Concomitant]
     Active Substance: INFLIXIMAB
  4. KETAMINE [Concomitant]
     Active Substance: KETAMINE
  5. TRAMADOL. [Concomitant]
     Active Substance: TRAMADOL
  6. AZATHIOPRINE. [Concomitant]
     Active Substance: AZATHIOPRINE
  7. MYCOPHENOLATE MOFETIL. [Concomitant]
     Active Substance: MYCOPHENOLATE MOFETIL

REACTIONS (3)
  - No adverse event [Unknown]
  - Product use in unapproved indication [Unknown]
  - Off label use [Unknown]
